FAERS Safety Report 9293856 (Version 1)
Quarter: 2013Q2

REPORT INFORMATION
  Report Type: Spontaneous
  Country: US (occurrence: US)
  Receive Date: 20130516
  Receipt Date: 20130516
  Transmission Date: 20140414
  Serious: No
  Sender: FDA-Public Use
  Company Number: US-PFIZER INC-2013149264

PATIENT
  Age: 64 Year
  Sex: Female
  Weight: 79 kg

DRUGS (4)
  1. LEVOXYL [Suspect]
     Indication: HYPOTHYROIDISM
     Dosage: 150 UG, UNK
  2. LEVOXYL [Suspect]
     Dosage: 125 UG, UNK
  3. SIMVASTATIN [Concomitant]
     Dosage: 40 MG, UNK
  4. ATENOLOL [Concomitant]
     Dosage: 25 MG, UNK

REACTIONS (2)
  - Thyroid function test abnormal [Recovered/Resolved]
  - Weight increased [Unknown]
